FAERS Safety Report 16635086 (Version 1)
Quarter: 2019Q3

REPORT INFORMATION
  Report Type: Spontaneous
  Country: FR (occurrence: FR)
  Receive Date: 20190726
  Receipt Date: 20190726
  Transmission Date: 20191004
  Serious: Yes (Life-Threatening)
  Sender: FDA-Public Use
  Company Number: FR-SUN PHARMACEUTICAL INDUSTRIES LTD-2019RR-215234

PATIENT
  Age: 45 Year
  Sex: Female
  Weight: 75 kg

DRUGS (6)
  1. OXAZEPAM. [Suspect]
     Active Substance: OXAZEPAM
     Indication: TOXICITY TO VARIOUS AGENTS
     Dosage: 300 MILLIGRAM, UNK
     Route: 048
     Dates: start: 20190614
  2. PAROXETINE. [Suspect]
     Active Substance: PAROXETINE
     Indication: TOXICITY TO VARIOUS AGENTS
     Dosage: 880 MILLIGRAM, UNK
     Route: 048
     Dates: start: 20190614
  3. NUROFEN [Suspect]
     Active Substance: IBUPROFEN
     Indication: TOXICITY TO VARIOUS AGENTS
     Dosage: 2.8 GRAM, UNK
     Route: 048
     Dates: start: 20190614
  4. HYDROXYZINE (CHLORHYDRATE D^) [Suspect]
     Active Substance: HYDROXYZINE HYDROCHLORIDE
     Indication: TOXICITY TO VARIOUS AGENTS
     Dosage: 375 MILLIGRAM, UNK
     Route: 048
     Dates: start: 20190614
  5. VALPROMIDE [Suspect]
     Active Substance: VALPROMIDE
     Indication: TOXICITY TO VARIOUS AGENTS
     Dosage: 12 GRAM, UNK
     Route: 048
     Dates: start: 20190614
  6. NALTREXONE (CHLORHYDRATE DE) [Suspect]
     Active Substance: NALTREXONE
     Indication: TOXICITY TO VARIOUS AGENTS
     Dosage: 2.4 GRAM, UNK
     Route: 048
     Dates: start: 20190614

REACTIONS (4)
  - Agitation [Recovered/Resolved]
  - Coma [Recovered/Resolved]
  - Hypertension [Recovered/Resolved]
  - Toxicity to various agents [Recovered/Resolved]

NARRATIVE: CASE EVENT DATE: 20190614
